FAERS Safety Report 8069322-X (Version None)
Quarter: 2012Q1

REPORT INFORMATION
  Report Type: 
  Country: None (occurrence: None)
  Receive Date: 20120125
  Receipt Date: 20120119
  Transmission Date: 20120608
  Serious: Yes (Other)
  Sender: FDA-Public Use
  Company Number: US-JNJFOC-20120108770

PATIENT
  Sex: Male
  Weight: 79.38 kg

DRUGS (2)
  1. RISPERDAL [Suspect]
     Indication: BIPOLAR DISORDER
     Dosage: AT BED TIME
     Route: 048
     Dates: start: 20110101
  2. LITHIUM [Concomitant]
     Indication: TACHYPHRENIA
     Route: 048
     Dates: start: 20111001

REACTIONS (4)
  - JOINT RANGE OF MOTION DECREASED [None]
  - MUSCLE DISORDER [None]
  - CONVULSION [None]
  - JOINT DISLOCATION [None]
